FAERS Safety Report 5748813-8 (Version None)
Quarter: 2008Q2

REPORT INFORMATION
  Report Type: 
  Country: None (occurrence: None)
  Receive Date: 20080522
  Receipt Date: 20080505
  Transmission Date: 20081010
  Serious: Yes (Hospitalization)
  Sender: FDA-Public Use
  Company Number: 2008AL003423

PATIENT
  Age: 83 Year
  Sex: Male
  Weight: 68.0396 kg

DRUGS (4)
  1. DIGOXIN [Suspect]
     Indication: ATRIAL FIBRILLATION
     Dosage: 0.125MG DAILY PO
     Route: 048
  2. COUMADIN [Concomitant]
  3. DILANTIN [Concomitant]
  4. FENTANYL TRANSDERMAL SYSTEM [Concomitant]

REACTIONS (3)
  - CEREBROVASCULAR ACCIDENT [None]
  - CONVULSION [None]
  - VOMITING [None]
